FAERS Safety Report 5570143-8 (Version None)
Quarter: 2007Q4

REPORT INFORMATION
  Report Type: 
  Country: None (occurrence: None)
  Receive Date: 20071220
  Receipt Date: 20071210
  Transmission Date: 20080405
  Serious: Yes (Other)
  Sender: FDA-Public Use
  Company Number: JP-PFIZER INC-2007104518

PATIENT
  Age: 17 Month
  Sex: Female

DRUGS (7)
  1. ZITHROMAX [Suspect]
     Indication: BRONCHITIS
     Dosage: DAILY DOSE:90MG
     Route: 048
     Dates: start: 20071106, end: 20071108
  2. HUSCODE [Concomitant]
     Route: 048
     Dates: start: 20071023, end: 20071110
  3. MUCOSOLVAN [Concomitant]
     Route: 048
     Dates: start: 20071023, end: 20071110
  4. POLARAMINE [Concomitant]
     Route: 048
     Dates: start: 20071023, end: 20071110
  5. HOKUNALIN [Concomitant]
     Route: 062
     Dates: start: 20071023, end: 20071110
  6. CLARITHROMYCIN [Concomitant]
     Route: 048
  7. FAROM [Concomitant]
     Route: 048

REACTIONS (1)
  - SKIN EXFOLIATION [None]
